FAERS Safety Report 7592648-0 (Version None)
Quarter: 2011Q3

REPORT INFORMATION
  Report Type: 
  Country: None (occurrence: None)
  Receive Date: 20110706
  Receipt Date: 20110629
  Transmission Date: 20111222
  Serious: Yes (Hospitalization)
  Sender: FDA-Public Use
  Company Number: JP-PFIZER INC-2011145660

PATIENT
  Age: 81 Year
  Sex: Male

DRUGS (1)
  1. DOXAZOSIN MESYLATE [Suspect]
     Dosage: UNK
     Route: 048
     Dates: start: 20110401, end: 20110622

REACTIONS (2)
  - CEREBRAL INFARCTION [None]
  - THROMBOCYTOPENIA [None]
